FAERS Safety Report 13742428 (Version 1)
Quarter: 2017Q3

REPORT INFORMATION
  Report Type: Spontaneous
  Country: US (occurrence: US)
  Receive Date: 20170711
  Receipt Date: 20170711
  Transmission Date: 20171127
  Serious: Yes (Death)
  Sender: FDA-Public Use
  Company Number: US-BAYER-2017-125422

PATIENT
  Sex: Male

DRUGS (3)
  1. YEAST-GARD [CANDIDA ALBICANS,CANDIDA PARAPSILOSIS,PULSATILLA PRATE [Concomitant]
     Indication: HOMEOPATHY
     Dosage: UNK
     Dates: start: 20170628, end: 20170628
  2. ALKA-SELTZER PLUS NIGHT COLD MEDICINE [Suspect]
     Active Substance: ASPIRIN\DEXTROMETHORPHAN HYDROBROMIDE\DOXYLAMINE SUCCINATE\PHENYLEPHRINE BITARTRATE
     Indication: NEOPLASM MALIGNANT
     Dosage: UNK
     Dates: start: 19500601, end: 20170628
  3. SILVER [Suspect]
     Active Substance: SILVER
     Indication: DEATH
     Dosage: UNK
     Dates: start: 19500601, end: 20170628

REACTIONS (2)
  - Death [Fatal]
  - Product use in unapproved indication [None]

NARRATIVE: CASE EVENT DATE: 20170628
